FAERS Safety Report 6370730-3 (Version None)
Quarter: 2009Q3

REPORT INFORMATION
  Report Type: 
  Country: None (occurrence: None)
  Receive Date: 20090923
  Receipt Date: 20070615
  Transmission Date: 20100115
  Serious: Yes (Hospitalization)
  Sender: FDA-Public Use
  Company Number: US-ASTRAZENECA-2006UW25631

PATIENT
  Age: 14352 Day
  Sex: Female
  Weight: 113.9 kg

DRUGS (9)
  1. SEROQUEL [Suspect]
     Indication: BIPOLAR DISORDER
     Dosage: 200 MG TO 300 MG DAILY
     Route: 048
     Dates: start: 20030101, end: 20060101
  2. SEROQUEL [Suspect]
     Indication: DEPRESSION
     Dosage: 200 MG TO 300 MG DAILY
     Route: 048
     Dates: start: 20030101, end: 20060101
  3. SEROQUEL [Suspect]
     Indication: ANXIETY
     Dosage: 200 MG TO 300 MG DAILY
     Route: 048
     Dates: start: 20030101, end: 20060101
  4. SEROQUEL [Suspect]
     Dosage: 25-500 MG DAILY
     Route: 048
     Dates: start: 20041011
  5. SEROQUEL [Suspect]
     Dosage: 25-500 MG DAILY
     Route: 048
     Dates: start: 20041011
  6. SEROQUEL [Suspect]
     Dosage: 25-500 MG DAILY
     Route: 048
     Dates: start: 20041011
  7. DEPAKOTE [Concomitant]
  8. METFORMIN HCL [Concomitant]
     Route: 048
     Dates: start: 20051118
  9. PEPCID [Concomitant]
     Route: 048
     Dates: start: 20050506

REACTIONS (1)
  - DIABETES MELLITUS [None]
